FAERS Safety Report 8886003 (Version 2)
Quarter: 2013Q1

REPORT INFORMATION
  Report Type: Spontaneous
  Country: US (occurrence: US)
  Receive Date: 20121105
  Receipt Date: 20130103
  Transmission Date: 20140127
  Serious: Yes (Other)
  Sender: FDA-Public Use
  Company Number: US-PFIZER INC-2012272388

PATIENT
  Age: 62 Year
  Sex: Male
  Weight: 86.17 kg

DRUGS (7)
  1. TOVIAZ [Suspect]
     Indication: HYPERTONIC BLADDER
     Dosage: 4 MG, 1X/DAY (BEDTIME)
     Route: 048
     Dates: start: 20121029, end: 20121030
  2. FLOMAX TAMSULOSIN [Concomitant]
     Indication: PROSTATOMEGALY
     Dosage: 0.4 MG,DAILY
  3. LASIX [Concomitant]
     Indication: DIURETIC THERAPY
     Dosage: 40 MG,DAILY
     Route: 048
     Dates: start: 2011
  4. METFORMIN [Concomitant]
     Indication: DIABETES MELLITUS
     Dosage: 850 MG, 2X/DAY
  5. GABAPENTIN [Concomitant]
     Indication: SENSORY LOSS
     Dosage: 300 MG,DAILY
  6. NIASPAN [Concomitant]
     Indication: BLOOD CHOLESTEROL ABNORMAL
     Dosage: 500 MG,DAILY
  7. PLAVIX [Concomitant]
     Indication: ANTICOAGULANT THERAPY
     Dosage: 75 MG,DAILY

REACTIONS (1)
  - Urinary retention [Recovered/Resolved]
